FAERS Safety Report 7690208-4 (Version None)
Quarter: 2011Q3

REPORT INFORMATION
  Report Type: 
  Country: None (occurrence: None)
  Receive Date: 20110812
  Receipt Date: 20110801
  Transmission Date: 20111222
  Serious: Yes (Hospitalization)
  Sender: FDA-Public Use
  Company Number: 2011SP036254

PATIENT
  Age: 88 Year
  Sex: Female

DRUGS (3)
  1. NITROGLYCERIN [Concomitant]
  2. DESLORATADINE [Suspect]
     Indication: PRURITUS
     Dosage: 5 MG;BID;PO
     Route: 048
     Dates: start: 20110502, end: 20110523
  3. FUROSEMIDE [Concomitant]

REACTIONS (7)
  - CONFUSIONAL STATE [None]
  - DERMATITIS CONTACT [None]
  - ECZEMA [None]
  - PRURITUS [None]
  - EXCORIATION [None]
  - CONDITION AGGRAVATED [None]
  - GENERAL PHYSICAL HEALTH DETERIORATION [None]
